FAERS Safety Report 20363307 (Version 2)
Quarter: 2022Q1

REPORT INFORMATION
  Report Type: Spontaneous
  Country: JP (occurrence: None)
  Receive Date: 20220121
  Receipt Date: 20220128
  Transmission Date: 20220424
  Serious: Yes (Other)
  Sender: FDA-Public Use
  Company Number: 2022A027889

PATIENT
  Age: 85 Year
  Sex: Male

DRUGS (3)
  1. NEXIUM [Suspect]
     Active Substance: ESOMEPRAZOLE MAGNESIUM
     Indication: Gastrooesophageal reflux disease
     Dosage: DOSE UNKNOWN
     Route: 048
  2. ENALAPRIL [Concomitant]
     Active Substance: ENALAPRIL
     Dosage: DOSE UNKNOWN, PERORAL MEDICINE
     Route: 048
  3. KENACORT [Concomitant]
     Active Substance: TRIAMCINOLONE
     Dosage: 1 A (40 MG) WAS DILUTED TO 5 ML, AND DIVIDED FOR 25
     Route: 065

REACTIONS (1)
  - Gastric cancer [Unknown]
